FAERS Safety Report 9981907 (Version 1)
Quarter: 2014Q1

REPORT INFORMATION
  Report Type: Report from Study
  Country: US (occurrence: US)
  Receive Date: 20140307
  Receipt Date: 20140307
  Transmission Date: 20141002
  Serious: No
  Sender: FDA-Public Use
  Company Number: US-ABBVIE-13P-163-1177604-00

PATIENT
  Age: 49 Year
  Sex: Female

DRUGS (9)
  1. HUMIRA [Suspect]
     Indication: COLITIS ULCERATIVE
     Dates: start: 20131004, end: 20131227
  2. ASACOL [Concomitant]
     Indication: COLITIS ULCERATIVE
  3. MIRTAZAPINE [Concomitant]
     Indication: DEPRESSION
  4. DOXEPIN [Concomitant]
     Indication: DEPRESSION
  5. CELEXA [Concomitant]
     Indication: DEPRESSION
  6. BUSPIRONE [Concomitant]
     Indication: DEPRESSION
  7. ALPRAZOLAM [Concomitant]
     Indication: ANXIETY
  8. OMEPRAZOLE [Concomitant]
     Indication: GASTROOESOPHAGEAL REFLUX DISEASE
  9. MULTIVITAMIN [Concomitant]
     Indication: ROUTINE HEALTH MAINTENANCE

REACTIONS (1)
  - Oedema peripheral [Not Recovered/Not Resolved]
